FAERS Safety Report 10013647 (Version 1)
Quarter: 2014Q1

REPORT INFORMATION
  Report Type: Spontaneous
  Country: US (occurrence: US)
  Receive Date: 20140315
  Receipt Date: 20140315
  Transmission Date: 20141002
  Serious: No
  Sender: FDA-Public Use
  Company Number: US-B.I. PHARMACEUTICALS,INC./RIDGEFIELD-2014-BI-10459BP

PATIENT
  Age: 69 Year
  Sex: Male
  Weight: 93 kg

DRUGS (4)
  1. PRADAXA [Suspect]
     Indication: ATRIAL FIBRILLATION
     Dosage: 300 MG
     Route: 048
     Dates: start: 20140120, end: 20140304
  2. KLOR-CON [Concomitant]
     Indication: ELECTROLYTE SUBSTITUTION THERAPY
     Dosage: 10 MEQ
     Route: 048
  3. SOTOLOL [Concomitant]
     Indication: ATRIAL FIBRILLATION
     Dosage: 480 MG
     Route: 048
  4. HCTZ [Concomitant]
     Indication: HYPERTENSION
     Dosage: 25 MG
     Route: 048

REACTIONS (3)
  - Throat irritation [Not Recovered/Not Resolved]
  - Eructation [Not Recovered/Not Resolved]
  - Gastrooesophageal reflux disease [Not Recovered/Not Resolved]
